FAERS Safety Report 21323485 (Version 2)
Quarter: 2022Q4

REPORT INFORMATION
  Report Type: Spontaneous
  Country: FR (occurrence: FR)
  Receive Date: 20220912
  Receipt Date: 20221008
  Transmission Date: 20230113
  Serious: Yes (Hospitalization)
  Sender: FDA-Public Use
  Company Number: FR-TEVA-2022-FR-2072334

PATIENT
  Age: 2 Year
  Sex: Female

DRUGS (6)
  1. AMOXICILLIN [Suspect]
     Active Substance: AMOXICILLIN
     Indication: Product used for unknown indication
     Dosage: 0.25 MG/KG
     Route: 065
  2. AMOXICILLIN\CLAVULANIC ACID [Suspect]
     Active Substance: AMOXICILLIN\CLAVULANIC ACID
     Indication: Arthritis bacterial
     Dosage: INITIAL DOSE NOT STATED
     Route: 048
  3. AMOXICILLIN\CLAVULANIC ACID [Suspect]
     Active Substance: AMOXICILLIN\CLAVULANIC ACID
     Dosage: 1/100TH OF THE THERAPEUTIC DOSE (0.25 MG/KG)
     Route: 048
  4. AMOXICILLIN\CLAVULANIC ACID [Suspect]
     Active Substance: AMOXICILLIN\CLAVULANIC ACID
     Dosage: PROGRESSIVELY INCREASING DOSE; 1/10TH (2.5 MG/KG)
     Route: 048
  5. AMOXICILLIN\CLAVULANIC ACID [Suspect]
     Active Substance: AMOXICILLIN\CLAVULANIC ACID
     Dosage: FULL DOSE (25 MG/KG)
     Route: 048
  6. CEFPODOXIME [Concomitant]
     Active Substance: CEFPODOXIME
     Indication: Ear infection
     Route: 065

REACTIONS (2)
  - Enterocolitis [Recovered/Resolved]
  - Drug hypersensitivity [Recovered/Resolved]
